FAERS Safety Report 6027248-7 (Version None)
Quarter: 2009Q1

REPORT INFORMATION
  Report Type: 
  Country: None (occurrence: None)
  Receive Date: 20090105
  Receipt Date: 20081231
  Transmission Date: 20090719
  Serious: Yes (Other)
  Sender: FDA-Public Use
  Company Number: FI-AVENTIS-200821938GDDC

PATIENT
  Age: 74 Year
  Sex: Male

DRUGS (5)
  1. FLAGYL [Suspect]
     Indication: PNEUMONIA
     Route: 048
     Dates: start: 20081118, end: 20081130
  2. TAZOCIN [Suspect]
     Indication: PNEUMONIA
     Dosage: DOSE: 12G/1.5G
     Route: 042
     Dates: start: 20081119, end: 20081124
  3. ZINACEF                            /00454601/ [Concomitant]
     Indication: PNEUMONIA
     Dosage: DOSE: UNK
     Dates: start: 20081117, end: 20081119
  4. ROXITHROMYCIN [Concomitant]
     Indication: PNEUMONIA
     Route: 048
     Dates: start: 20081117, end: 20081124
  5. PANADOL                            /00020001/ [Concomitant]
     Indication: PYREXIA
     Route: 054
     Dates: start: 20081118, end: 20081121

REACTIONS (1)
  - HALLUCINATION [None]
